FAERS Safety Report 11333832 (Version 1)
Quarter: 2015Q3

REPORT INFORMATION
  Report Type: Spontaneous
  Country: US (occurrence: US)
  Receive Date: 20150803
  Receipt Date: 20150803
  Transmission Date: 20151125
  Serious: Yes (Other)
  Sender: FDA-Public Use
  Company Number: US-ELI_LILLY_AND_COMPANY-US200606002828

PATIENT
  Age: 49 Year
  Sex: Male
  Weight: 94.78 kg

DRUGS (26)
  1. ARIPIPRAZOLE. [Concomitant]
     Active Substance: ARIPIPRAZOLE
     Dates: start: 2005, end: 2006
  2. DEPAKOTE [Concomitant]
     Active Substance: DIVALPROEX SODIUM
     Dosage: 1 D/F, UNK
     Dates: start: 2004
  3. ZYPREXA [Suspect]
     Active Substance: OLANZAPINE
     Dosage: 20 MG, UNK
     Dates: start: 20040421, end: 20050210
  4. LORAZEPAM. [Concomitant]
     Active Substance: LORAZEPAM
     Dates: start: 2004, end: 2005
  5. CLONAZEPAM. [Concomitant]
     Active Substance: CLONAZEPAM
     Dates: start: 2003
  6. FLUVOXAMINE [Concomitant]
     Active Substance: FLUVOXAMINE
     Dates: start: 2003, end: 2004
  7. DEPAKOTE [Concomitant]
     Active Substance: DIVALPROEX SODIUM
     Dosage: 1 D/F, UNK
     Dates: start: 2005
  8. ZYPREXA [Suspect]
     Active Substance: OLANZAPINE
     Dosage: 5 MG, UNKNOWN
     Route: 065
     Dates: start: 20030709
  9. METOPROLOL [Concomitant]
     Active Substance: METOPROLOL
     Dosage: 1 D/F, UNK
     Dates: start: 2004
  10. DEPAKENE [Concomitant]
     Active Substance: VALPROIC ACID
     Dosage: 1 D/F, UNK
     Dates: start: 2004
  11. ZYPREXA [Suspect]
     Active Substance: OLANZAPINE
     Dosage: 20 MG, UNK
     Dates: start: 20050215, end: 20050519
  12. BUPROPION. [Concomitant]
     Active Substance: BUPROPION
     Dates: start: 2005
  13. ESCITALOPRAM [Concomitant]
     Active Substance: ESCITALOPRAM OXALATE
     Dates: start: 2004
  14. DEPAKENE [Concomitant]
     Active Substance: VALPROIC ACID
     Dosage: 1 D/F, UNK
     Dates: start: 2005
  15. ZYPREXA [Suspect]
     Active Substance: OLANZAPINE
     Dosage: UNK, UNKNOWN
     Route: 065
     Dates: start: 1998
  16. ZYPREXA [Suspect]
     Active Substance: OLANZAPINE
     Dosage: 10 MG, UNKNOWN
     Route: 065
     Dates: start: 20050725, end: 20061114
  17. QUETIAPINE [Concomitant]
     Active Substance: QUETIAPINE
     Dates: start: 2004
  18. GABAPENTIN. [Concomitant]
     Active Substance: GABAPENTIN
     Dates: start: 2005, end: 2006
  19. DEPAKOTE [Concomitant]
     Active Substance: DIVALPROEX SODIUM
     Dosage: 1 D/F, UNK
     Dates: start: 2006
  20. METOPROLOL [Concomitant]
     Active Substance: METOPROLOL
     Dosage: 1 D/F, UNK
     Dates: start: 2005
  21. FLUPHENAZINE DECANOATE. [Concomitant]
     Active Substance: FLUPHENAZINE DECANOATE
     Dates: start: 2006
  22. COGENTIN [Concomitant]
     Active Substance: BENZTROPINE MESYLATE
     Dates: start: 2005
  23. DEPAKOTE [Concomitant]
     Active Substance: DIVALPROEX SODIUM
     Dosage: 1 D/F, UNK
     Dates: start: 2003
  24. RISPERIDONE. [Concomitant]
     Active Substance: RISPERIDONE
     Dates: start: 2003, end: 2004
  25. HALOPERIDOL. [Concomitant]
     Active Substance: HALOPERIDOL
     Dates: start: 2004
  26. CELEXA [Concomitant]
     Active Substance: CITALOPRAM HYDROBROMIDE
     Dates: start: 2004

REACTIONS (4)
  - Hypertension [Unknown]
  - Blood triglycerides increased [Unknown]
  - Hyperosmolar hyperglycaemic state [Unknown]
  - Type 2 diabetes mellitus [Not Recovered/Not Resolved]

NARRATIVE: CASE EVENT DATE: 20011120
